FAERS Safety Report 18344026 (Version 1)
Quarter: 2020Q4

REPORT INFORMATION
  Report Type: Spontaneous
  Country: US (occurrence: US)
  Receive Date: 20201001
  Receipt Date: 20201001
  Transmission Date: 20210114
  Serious: Yes (Hospitalization)
  Sender: FDA-Public Use
  Company Number: None

PATIENT
  Age: 46 Year
  Sex: Male
  Weight: 74.96 kg

DRUGS (3)
  1. METHOTREXATE. [Suspect]
     Active Substance: METHOTREXATE
     Dates: end: 20200601
  2. MERCAPTOPURINE. [Suspect]
     Active Substance: MERCAPTOPURINE
     Dates: end: 20200525
  3. VINCRISTINE SULFATE. [Suspect]
     Active Substance: VINCRISTINE SULFATE
     Dates: end: 20200518

REACTIONS (18)
  - Blood pressure increased [None]
  - Pneumonia viral [None]
  - Fatigue [None]
  - Hyporesponsive to stimuli [None]
  - Wound [None]
  - Headache [None]
  - Depression [None]
  - Steroid diabetes [None]
  - Acute respiratory distress syndrome [None]
  - Back pain [None]
  - Lung consolidation [None]
  - Respiratory failure [None]
  - Unevaluable event [None]
  - SARS-CoV-2 test positive [None]
  - COVID-19 pneumonia [None]
  - Tenderness [None]
  - White blood cell count decreased [None]
  - Neutropenia [None]

NARRATIVE: CASE EVENT DATE: 20200526
